FAERS Safety Report 4553731-7 (Version None)
Quarter: 2004Q4

REPORT INFORMATION
  Report Type: 
  Country: None (occurrence: None)
  Receive Date: 20041227
  Receipt Date: 20040909
  Transmission Date: 20050328
  Serious: No
  Sender: FDA-Public Use
  Company Number: 04P-163-0272819-00

PATIENT
  Age: 74 Year
  Sex: Male

DRUGS (10)
  1. HUMIRA [Suspect]
     Indication: RHEUMATOID ARTHRITIS
     Dosage: 40 MG, 1 IN 2 WK, SUBCUTANEOUS
     Route: 058
     Dates: start: 20040409
  2. LEFLUNOMIDE [Concomitant]
  3. PREDNISONE [Concomitant]
  4. CELECOXIB [Concomitant]
  5. CALCIUM GLUCONATE [Concomitant]
  6. MULTI-VITAMINS [Concomitant]
  7. ALENDRONATE SODIUM [Concomitant]
  8. TOLTERODINE TARTRATE [Concomitant]
  9. SERETIDE MITE [Concomitant]
  10. GLIBENCLAMIDE [Concomitant]

REACTIONS (2)
  - HOARSENESS [None]
  - SINUSITIS [None]
